FAERS Safety Report 11276186 (Version 1)
Quarter: 2015Q3

REPORT INFORMATION
  Report Type: Spontaneous
  Country: EG (occurrence: EG)
  Receive Date: 20150716
  Receipt Date: 20150716
  Transmission Date: 20151125
  Serious: Yes (Other)
  Sender: FDA-Public Use
  Company Number: EG-PFIZER INC.-2015187380

PATIENT
  Sex: Female

DRUGS (1)
  1. SILDENAFIL CITRATE. [Suspect]
     Active Substance: SILDENAFIL CITRATE
     Indication: ENDOMETRIAL DISORDER
     Dosage: 1 DF, DAILY
     Route: 067

REACTIONS (3)
  - Vaginal inflammation [Recovered/Resolved]
  - Off label use [Unknown]
  - Vulvovaginal pruritus [Recovered/Resolved]
